FAERS Safety Report 4303605-1 (Version None)
Quarter: 2004Q1

REPORT INFORMATION
  Report Type: 
  Country: None (occurrence: None)
  Receive Date: 20040225
  Receipt Date: 20031016
  Transmission Date: 20041129
  Serious: Yes (Hospitalization)
  Sender: FDA-Public Use
  Company Number: FR-BRISTOL-MYERS SQUIBB COMPANY-12413266

PATIENT
  Age: 51 Year
  Sex: Female

DRUGS (17)
  1. GLUCOPHAGE [Suspect]
     Route: 048
     Dates: end: 20030723
  2. PROTHIADEN [Suspect]
     Route: 048
     Dates: end: 20030723
  3. TAHOR [Suspect]
     Route: 048
     Dates: end: 20030723
  4. DEPAMIDE [Suspect]
     Route: 048
     Dates: end: 20030723
  5. LOXAPAC [Suspect]
     Route: 048
     Dates: end: 20030723
  6. TRIATEC [Suspect]
     Route: 048
     Dates: end: 20030723
  7. ATARAX [Concomitant]
  8. LORAZEPAM [Concomitant]
  9. PRAZINIL [Concomitant]
  10. MEPRONIZINE [Concomitant]
  11. DOLIPRANE [Concomitant]
  12. POLYSILANE [Concomitant]
  13. LEPTICUR [Concomitant]
  14. XENICAL [Concomitant]
  15. FUNGIZONE [Concomitant]
  16. VASTAREL [Concomitant]
  17. PEVARYL [Concomitant]

REACTIONS (3)
  - LACTIC ACIDOSIS [None]
  - RENAL FAILURE ACUTE [None]
  - SEPTIC SHOCK [None]
